FAERS Safety Report 5507067-8 (Version None)
Quarter: 2007Q4

REPORT INFORMATION
  Report Type: 
  Country: None (occurrence: None)
  Receive Date: 20071102
  Receipt Date: 20071025
  Transmission Date: 20080405
  Serious: Yes (Hospitalization)
  Sender: FDA-Public Use
  Company Number: 2007316690

PATIENT
  Age: 6 Year
  Sex: Male
  Weight: 23 kg

DRUGS (1)
  1. LISTERINE AGENT COOL BLUE GLACIER MINT (NO ACTIVE INGREDIENT) [Suspect]
     Dosage: 10 ML, 3-4 TIMES WEEKLY, ORAL
     Route: 048
     Dates: start: 20061201, end: 20070112

REACTIONS (15)
  - BLOOD ALKALINE PHOSPHATASE INCREASED [None]
  - BLOOD GLUCOSE INCREASED [None]
  - BLOOD SODIUM DECREASED [None]
  - COARCTATION OF THE AORTA [None]
  - COLITIS [None]
  - DRUG INEFFECTIVE [None]
  - DUODENITIS [None]
  - GASTRIC ULCER [None]
  - GASTRITIS [None]
  - HAEMATOCRIT DECREASED [None]
  - HENOCH-SCHONLEIN PURPURA [None]
  - MITRAL VALVE INCOMPETENCE [None]
  - PLATELET COUNT INCREASED [None]
  - SCROTAL PAIN [None]
  - VASCULITIS [None]
